FAERS Safety Report 19816066 (Version 1)
Quarter: 2021Q3

REPORT INFORMATION
  Report Type: Spontaneous
  Country: US (occurrence: US)
  Receive Date: 20210910
  Receipt Date: 20210910
  Transmission Date: 20211014
  Serious: No
  Sender: FDA-Public Use
  Company Number: US-NABRIVA THERAPEUTICS IRELAND DAC-US-2021NAB000009

PATIENT

DRUGS (2)
  1. XENLETA [Suspect]
     Active Substance: LEFAMULIN ACETATE
     Indication: PNEUMONIA BACTERIAL
     Dosage: UNK MG, UNK
  2. XENLETA [Suspect]
     Active Substance: LEFAMULIN ACETATE
     Indication: PNEUMONIA

REACTIONS (2)
  - Diarrhoea [Recovered/Resolved]
  - Gastrointestinal disorder [Recovered/Resolved]
